FAERS Safety Report 24459344 (Version 1)
Quarter: 2024Q4

REPORT INFORMATION
  Report Type: Report from Study
  Country: US (occurrence: US)
  Receive Date: 20241018
  Receipt Date: 20241018
  Transmission Date: 20250114
  Serious: No
  Sender: ROCHE
  Company Number: US-ROCHE-3535889

PATIENT
  Age: 57 Year
  Sex: Female

DRUGS (2)
  1. RITUXAN [Suspect]
     Active Substance: RITUXIMAB
     Indication: Hereditary haemolytic anaemia
     Dosage: STRENGTH: 100 MG AND 500 MG
     Route: 041
  2. RITUXAN [Suspect]
     Active Substance: RITUXIMAB
     Dosage: THERAPY END DATE: 28/MAR/2025, 100 MG SINGLE-USE VIAL
     Route: 041
     Dates: start: 20240328

REACTIONS (2)
  - Off label use [Unknown]
  - No adverse event [Unknown]
